FAERS Safety Report 19868713 (Version 1)
Quarter: 2021Q3

REPORT INFORMATION
  Report Type: Other
  Country: CA (occurrence: CA)
  Receive Date: 20210922
  Receipt Date: 20210922
  Transmission Date: 20211014
  Serious: Yes (Hospitalization, Other)
  Sender: FDA-Public Use
  Company Number: CA-APOTEX-2021AP042691

PATIENT
  Age: 36 Year
  Sex: Female

DRUGS (5)
  1. TRAMADOL. [Interacting]
     Active Substance: TRAMADOL
     Indication: PAIN
     Dosage: 187.5 MILLIGRAM
     Route: 065
  2. PREGABALIN. [Interacting]
     Active Substance: PREGABALIN
     Indication: PAIN
     Dosage: 150 MILLIGRAM
     Route: 065
  3. DULOXETINE. [Interacting]
     Active Substance: DULOXETINE
     Indication: PAIN
     Dosage: 60 MILLIGRAM
     Route: 065
  4. ACETAMINOPHEN. [Suspect]
     Active Substance: ACETAMINOPHEN
     Indication: PAIN
     Dosage: UNK
     Route: 065
  5. TRIAZOLAM. [Interacting]
     Active Substance: TRIAZOLAM
     Indication: PAIN
     Dosage: UNK UNK, QD
     Route: 065

REACTIONS (2)
  - Serotonin syndrome [Recovered/Resolved]
  - Labelled drug-drug interaction issue [Recovered/Resolved]
